FAERS Safety Report 4356953-3 (Version None)
Quarter: 2004Q2

REPORT INFORMATION
  Report Type: 
  Country: None (occurrence: None)
  Receive Date: 20040507
  Receipt Date: 20040426
  Transmission Date: 20050107
  Serious: Yes (Hospitalization)
  Sender: FDA-Public Use
  Company Number: FR-JNJFOC-20040405452

PATIENT
  Age: 66 Year
  Sex: Male

DRUGS (7)
  1. IXPRIM (TRAMADOL/APAP) TABLETS [Suspect]
     Indication: DRUG USE FOR UNKNOWN INDICATION
     Dosage: 3 IN 1 DAY, ORAL
     Route: 048
     Dates: end: 20040222
  2. GLYBURIDE [Suspect]
     Indication: DIABETES MELLITUS
     Dosage: 5 MG, 2 IN 1 DAY, ORAL
     Route: 048
     Dates: end: 20040223
  3. BIPROFENID (BISMUTH SUBCARBONATE) [Suspect]
     Indication: MYOSITIS
     Dosage: 150 MG, 2 IN 1 DAY, ORAL
     Route: 048
     Dates: start: 20040116, end: 20040222
  4. PRAXILENE (NAFTIDROFURYL OXALATE) [Concomitant]
  5. GLUCOPHAGE [Concomitant]
  6. RAMIPRIL [Concomitant]
  7. MYOLASTAN (TETRAZEPAM) [Concomitant]

REACTIONS (6)
  - CONVULSION [None]
  - DIARRHOEA [None]
  - DRUG INTERACTION [None]
  - HYPOGLYCAEMIA [None]
  - OVERDOSE [None]
  - WEIGHT DECREASED [None]
